FAERS Safety Report 7826144-X (Version None)
Quarter: 2011Q4

REPORT INFORMATION
  Report Type: 
  Country: None (occurrence: None)
  Receive Date: 20111019
  Receipt Date: 20111010
  Transmission Date: 20120403
  Serious: Yes (Hospitalization, Other)
  Sender: FDA-Public Use
  Company Number: US-ASTRAZENECA-2011SE59956

PATIENT
  Age: 54 Year
  Sex: Female

DRUGS (2)
  1. SEROQUEL XR [Suspect]
     Indication: BIPOLAR DISORDER
     Route: 048
  2. SEROQUEL XR [Suspect]
     Route: 048

REACTIONS (7)
  - PNEUMONIA [None]
  - DRUG RESISTANCE [None]
  - DEPRESSION [None]
  - IMPAIRED WORK ABILITY [None]
  - COGNITIVE DISORDER [None]
  - ANXIETY [None]
  - DISTURBANCE IN ATTENTION [None]
